FAERS Safety Report 9759802 (Version 2)
Quarter: 2013Q4

REPORT INFORMATION
  Report Type: Spontaneous
  Country: US (occurrence: US)
  Receive Date: 20131216
  Receipt Date: 20131216
  Transmission Date: 20140711
  Serious: No
  Sender: FDA-Public Use
  Company Number: US-GILEAD-2010-0028448

PATIENT
  Sex: Female

DRUGS (11)
  1. LETAIRIS [Suspect]
     Indication: PULMONARY ARTERIAL HYPERTENSION
     Route: 048
  2. PRAVACHOL [Concomitant]
  3. SYNTHROID [Concomitant]
  4. DIOVAN [Concomitant]
  5. EFFEXOR XR [Concomitant]
  6. XANAX [Concomitant]
  7. CARDIZEM [Concomitant]
  8. K-DUR [Concomitant]
  9. COUMADIN [Concomitant]
  10. VITAMIN D [Concomitant]
  11. FUROSEMIDE [Concomitant]

REACTIONS (1)
  - Blood count abnormal [Recovered/Resolved]
